FAERS Safety Report 19308673 (Version 1)
Quarter: 2021Q2

REPORT INFORMATION
  Report Type: Spontaneous
  Country: JP (occurrence: JP)
  Receive Date: 20210526
  Receipt Date: 20210526
  Transmission Date: 20210717
  Serious: Yes (Hospitalization)
  Sender: FDA-Public Use
  Company Number: JP-EISAI MEDICAL RESEARCH-EC-2021-093266

PATIENT
  Age: 63 Year
  Sex: Female

DRUGS (1)
  1. LENVIMA [Suspect]
     Active Substance: LENVATINIB
     Indication: MALIGNANT NEOPLASM OF THYMUS
     Route: 048
     Dates: start: 20210506, end: 20210515

REACTIONS (3)
  - Decreased appetite [Recovering/Resolving]
  - Gastrointestinal perforation [Recovering/Resolving]
  - Hypertension [Recovered/Resolved]

NARRATIVE: CASE EVENT DATE: 202105
